FAERS Safety Report 24098003 (Version 3)
Quarter: 2024Q3

REPORT INFORMATION
  Report Type: Report from Study
  Country: JP (occurrence: None)
  Receive Date: 20240716
  Receipt Date: 20240814
  Transmission Date: 20241017
  Serious: Yes (Death, Life-Threatening, Hospitalization)
  Sender: ASTRAZENECA
  Company Number: 2024A159738

PATIENT
  Age: 89 Year
  Sex: Female

DRUGS (14)
  1. DAPAGLIFLOZIN [Suspect]
     Active Substance: DAPAGLIFLOZIN
     Indication: Chronic kidney disease
     Route: 048
     Dates: start: 20230207, end: 20230222
  2. DAPAGLIFLOZIN [Suspect]
     Active Substance: DAPAGLIFLOZIN
     Indication: Chronic kidney disease
     Route: 048
     Dates: start: 20230415, end: 20230419
  3. ENTRESTO [Concomitant]
     Active Substance: SACUBITRIL\VALSARTAN
     Dosage: OPTIMAL DOSE
     Route: 048
     Dates: end: 20230221
  4. DIART [Concomitant]
     Dosage: OPTIMAL DOSE
     Route: 048
     Dates: end: 20230222
  5. CALCIUM POLYSTYRENE SULFONATE [Concomitant]
     Active Substance: CALCIUM POLYSTYRENE SULFONATE
     Dosage: OPTIMAL DOSE
     Route: 048
     Dates: end: 20230221
  6. ASPIRIN [Concomitant]
     Active Substance: ASPIRIN
     Dosage: DOSE UNKNOWN
     Route: 048
     Dates: end: 20230222
  7. CARVEDILOL [Concomitant]
     Active Substance: CARVEDILOL
     Dosage: DOSE UNKNOWN
     Route: 048
     Dates: end: 20230222
  8. ALLOPURINOL [Concomitant]
     Active Substance: ALLOPURINOL
     Dosage: DOSE UNKNOWN
     Route: 048
     Dates: end: 20230222
  9. URSO [Concomitant]
     Active Substance: URSODIOL
     Dosage: DOSE UNKNOWN
     Route: 048
     Dates: end: 20230221
  10. TORSEMIDE [Concomitant]
     Active Substance: TORSEMIDE
     Dosage: DOSE UNKNOWN
     Route: 048
     Dates: end: 20230222
  11. SPIRONOLACTONE [Concomitant]
     Active Substance: SPIRONOLACTONE
     Dosage: DOSE UNKNOWN
     Route: 048
     Dates: end: 20230222
  12. NITRODERM [Concomitant]
     Active Substance: NITROGLYCERIN
     Dosage: DOSE UNKNOWN
     Route: 062
     Dates: end: 20230223
  13. AZOSEMIDE [Concomitant]
     Active Substance: AZOSEMIDE
     Dosage: DOSE UNKNOWN
     Route: 048
     Dates: end: 20230222
  14. FEBUXOSTAT [Concomitant]
     Active Substance: FEBUXOSTAT
     Dosage: NUMBER OF SEPARATE DOSAGES UNKNOWN10.0MG UNKNOWN
     Route: 048
     Dates: start: 20230311, end: 20230327

REACTIONS (16)
  - Cardiac failure [Fatal]
  - Hyperammonaemia [Recovered/Resolved]
  - Renal failure [Recovering/Resolving]
  - Hepatic failure [Recovering/Resolving]
  - Generalised oedema [Not Recovered/Not Resolved]
  - Arthralgia [Unknown]
  - Abnormal faeces [Recovered/Resolved]
  - Zinc deficiency [Unknown]
  - Insomnia [Recovering/Resolving]
  - Vulvovaginal candidiasis [Unknown]
  - Dyspnoea [Not Recovered/Not Resolved]
  - Productive cough [Not Recovered/Not Resolved]
  - Condition aggravated [Not Recovered/Not Resolved]
  - Constipation [Recovered/Resolved]
  - Wheezing [Not Recovered/Not Resolved]
  - Pneumonia [Not Recovered/Not Resolved]

NARRATIVE: CASE EVENT DATE: 20230220
